FAERS Safety Report 14852060 (Version 1)
Quarter: 2018Q2

REPORT INFORMATION
  Report Type: Spontaneous
  Country: US (occurrence: US)
  Receive Date: 20180507
  Receipt Date: 20180507
  Transmission Date: 20180711
  Serious: No
  Sender: FDA-Public Use
  Company Number: US-BAYER-2018-079331

PATIENT
  Age: 83 Year
  Sex: Male
  Weight: 110 kg

DRUGS (4)
  1. BAYER ASPIRIN [Concomitant]
     Active Substance: ASPIRIN
  2. APIXABAN [Concomitant]
     Active Substance: APIXABAN
  3. GLIPIZIDE. [Concomitant]
     Active Substance: GLIPIZIDE
  4. MIRALAX [Suspect]
     Active Substance: POLYETHYLENE GLYCOL 3350
     Indication: GASTROINTESTINAL DISORDER
     Dosage: UNK, QD
     Route: 048
     Dates: start: 201802

REACTIONS (3)
  - Drug prescribing error [Unknown]
  - Incorrect drug administration duration [Unknown]
  - Product use issue [Unknown]
